FAERS Safety Report 21332682 (Version 1)
Quarter: 2022Q3

REPORT INFORMATION
  Report Type: Report from Study
  Country: JP (occurrence: None)
  Receive Date: 20220914
  Receipt Date: 20220914
  Transmission Date: 20221027
  Serious: Yes (Hospitalization)
  Sender: FDA-Public Use
  Company Number: 2022A315277

PATIENT
  Age: 75 Year
  Sex: Male
  Weight: 71.9 kg

DRUGS (9)
  1. OLAPARIB [Suspect]
     Active Substance: OLAPARIB
     Indication: Hormone-refractory prostate cancer
     Dosage: STARTING DOSE AT 300 MILLIGRAM, BID, FLUCTUATED DOSAGE
     Route: 048
     Dates: start: 20200916, end: 20220811
  2. OLAPARIB [Suspect]
     Active Substance: OLAPARIB
     Indication: Prostate cancer metastatic
     Dosage: STARTING DOSE AT 300 MILLIGRAM, BID, FLUCTUATED DOSAGE
     Route: 048
     Dates: start: 20200916, end: 20220811
  3. PEMBROLIZUMAB [Suspect]
     Active Substance: PEMBROLIZUMAB
     Indication: Hormone-refractory prostate cancer
     Dosage: 200 MILLIGRAM, Q3W
     Route: 042
     Dates: start: 20200916, end: 20220812
  4. PEMBROLIZUMAB [Suspect]
     Active Substance: PEMBROLIZUMAB
     Indication: Prostate cancer metastatic
     Dosage: 200 MILLIGRAM, Q3W
     Route: 042
     Dates: start: 20200916, end: 20220812
  5. ZOLEDRONIC ACID [Concomitant]
     Active Substance: ZOLEDRONIC ACID
     Indication: Resorption bone increased
     Dosage: [1] 4 MG DAILY, FREQ: OTHER
     Route: 042
     Dates: start: 20190919
  6. ALFACALCIDOL AMEL [Concomitant]
     Indication: Prophylaxis
     Dosage: [2] 1 MICROGRAM DAILY, FREQ: QD
     Route: 048
     Dates: start: 20200529
  7. FUROSEMIDE [Concomitant]
     Active Substance: FUROSEMIDE
     Indication: Oedema peripheral
     Dosage: [3] 40 MG DAILY, FREQ: QD
     Route: 048
     Dates: start: 20200731
  8. POTASSIUM ASPARTATE [Concomitant]
     Active Substance: POTASSIUM ASPARTATE
     Indication: Oedema peripheral
     Dosage: [4] 600 MG DAILY, FREQ: QD
     Route: 048
     Dates: start: 20200508
  9. CALCIUM LACTATE [Concomitant]
     Active Substance: CALCIUM LACTATE
     Indication: Prophylaxis
     Dosage: [5] 3 G DAILY, FREQ: QD
     Route: 048
     Dates: start: 20191205

REACTIONS (1)
  - Bacteraemia [Recovered/Resolved]

NARRATIVE: CASE EVENT DATE: 20220831
